FAERS Safety Report 5715493-7 (Version None)
Quarter: 2008Q2

REPORT INFORMATION
  Report Type: 
  Country: None (occurrence: None)
  Receive Date: 20080422
  Receipt Date: 20080411
  Transmission Date: 20081010
  Serious: Yes (Hospitalization)
  Sender: FDA-Public Use
  Company Number: 2008BM000063

PATIENT
  Age: 18 Year
  Sex: Female
  Weight: 48.6 kg

DRUGS (6)
  1. 6R-BH4 (SAPROPTERIN DIHYDROCHLORIDE) TABLET, 100MG [Suspect]
     Indication: SICKLE CELL ANAEMIA
     Dosage: 5 MG/KG; QD; PO, 5 MG/KG; QD; PO
     Route: 048
     Dates: start: 20080129, end: 20080318
  2. 6R-BH4 (SAPROPTERIN DIHYDROCHLORIDE) TABLET, 100MG [Suspect]
     Indication: SICKLE CELL ANAEMIA
     Dosage: 5 MG/KG; QD; PO, 5 MG/KG; QD; PO
     Route: 048
     Dates: start: 20080323
  3. AMOXICILLIN [Concomitant]
  4. FOLIC ACID [Concomitant]
  5. PERCOCET [Concomitant]
  6. MORPHINE SULFATE [Concomitant]

REACTIONS (8)
  - BACK PAIN [None]
  - DYSPNOEA [None]
  - NAUSEA [None]
  - PAIN IN EXTREMITY [None]
  - PNEUMONIA [None]
  - SICKLE CELL ANAEMIA WITH CRISIS [None]
  - SINUS TACHYCARDIA [None]
  - VOMITING [None]
